FAERS Safety Report 13363958 (Version 1)
Quarter: 2017Q1

REPORT INFORMATION
  Report Type: Report from Study
  Country: NL (occurrence: NL)
  Receive Date: 20170323
  Receipt Date: 20170323
  Transmission Date: 20170429
  Serious: Yes (Hospitalization)
  Sender: FDA-Public Use
  Company Number: NL-TEVA-752939ROM

PATIENT
  Age: 60 Year
  Sex: Female

DRUGS (9)
  1. SIMVASTATIN. [Concomitant]
     Active Substance: SIMVASTATIN
     Dosage: 40 MILLIGRAM DAILY;
     Dates: start: 20131121
  2. METOPROLOL. [Concomitant]
     Active Substance: METOPROLOL
     Dosage: 50 MILLIGRAM DAILY;
     Dates: start: 20131121
  3. AVASTIN [Suspect]
     Active Substance: BEVACIZUMAB
     Indication: BREAST CANCER METASTATIC
     Dosage: 50 MG ON DAYS 1 AND 15 EVERY 28 DAYS, LAST DOSE PRIOR TO SAE ONSET: 30-MAY-2016
     Route: 042
     Dates: start: 20160307
  4. MYOCET [Suspect]
     Active Substance: DOXORUBICIN
     Indication: BREAST CANCER METASTATIC
     Dosage: MYOCET WAS NOT ADMINISTERED (PATIENT WAS ON THE 1ST LINE TREATMENT)
     Route: 042
  5. PACLITAXEL. [Suspect]
     Active Substance: PACLITAXEL
     Indication: BREAST CANCER METASTATIC
     Dosage: 130 MG ON DAYS 1, 8 AND 15 EVERY 28 DAYS, LAST DOSE PRIOR TO SAE ONSET: 30-MAY-2016
     Route: 042
     Dates: start: 20160307
  6. NIFEDIPIN [Concomitant]
     Active Substance: NIFEDIPINE
     Dosage: 60 MILLIGRAM DAILY;
     Dates: start: 20131121
  7. EUTHYROX [Concomitant]
     Active Substance: LEVOTHYROXINE SODIUM
     Dosage: 50 MICROGRAM DAILY;
     Dates: start: 20131121
  8. VALSARTAN/HCT [Concomitant]
     Active Substance: HYDROCHLOROTHIAZIDE\VALSARTAN
     Dosage: 1 DOSAGE FORMS DAILY; 1 DOSAGE FORM (160/25) DAILY
     Dates: start: 20131121
  9. OXYCODONE [Concomitant]
     Active Substance: OXYCODONE
     Dosage: 10 MILLIGRAM DAILY;
     Dates: start: 20160216

REACTIONS (1)
  - Hypokalaemia [Recovered/Resolved]

NARRATIVE: CASE EVENT DATE: 20160530
